FAERS Safety Report 7479019-2 (Version None)
Quarter: 2011Q2

REPORT INFORMATION
  Report Type: 
  Country: None (occurrence: None)
  Receive Date: 20110511
  Receipt Date: 20110511
  Transmission Date: 20111010
  Serious: No
  Sender: FDA-Public Use
  Company Number: None

PATIENT
  Sex: Female
  Weight: 52.1637 kg

DRUGS (1)
  1. RESTASIS [Suspect]
     Indication: DRY EYE
     Dosage: ONE GTT BOTH EYES TWICE DAILY EYE GTTS 2010 + 2011

REACTIONS (6)
  - SENSATION OF FOREIGN BODY [None]
  - PAIN [None]
  - EYE DISCHARGE [None]
  - LACRIMATION INCREASED [None]
  - PRURITUS [None]
  - OCULAR HYPERAEMIA [None]
